FAERS Safety Report 10049981 (Version 2)
Quarter: 2014Q2

REPORT INFORMATION
  Report Type: Spontaneous
  Country: US (occurrence: US)
  Receive Date: 20140401
  Receipt Date: 20140404
  Transmission Date: 20141212
  Serious: Yes (Other)
  Sender: FDA-Public Use
  Company Number: US-BAYER-2014-043220

PATIENT
  Age: 84 Year
  Sex: Male
  Weight: 81.63 kg

DRUGS (4)
  1. BAYER GENUINE ASPIRIN ORIGINAL STRENGTH [Suspect]
     Indication: THROMBOSIS PROPHYLAXIS
     Dosage: 0.5 DF, QD
     Route: 048
     Dates: start: 1995, end: 1997
  2. BAYER GENUINE ASPIRIN ORIGINAL STRENGTH [Suspect]
     Indication: THROMBOSIS PROPHYLAXIS
     Dosage: 1 DF, QD
     Route: 048
     Dates: start: 1997, end: 2005
  3. BAYER ASPIRIN REGIMEN REGULAR 325 MG STRENGTH [Suspect]
     Indication: THROMBOSIS PROPHYLAXIS
     Dosage: 4 DF, QD
     Route: 048
     Dates: start: 200503, end: 2010
  4. BAYER ASPIRIN REGIMEN REGULAR 325 MG STRENGTH [Suspect]
     Indication: THROMBOSIS PROPHYLAXIS
     Dosage: 4 DF, QD
     Route: 048

REACTIONS (6)
  - Blood urine present [Recovered/Resolved]
  - Haemorrhage urinary tract [Recovered/Resolved]
  - Blood urine present [Recovered/Resolved]
  - Medication error [None]
  - Medication error [None]
  - Medication error [None]
